FAERS Safety Report 7304502-X (Version None)
Quarter: 2011Q1

REPORT INFORMATION
  Report Type: 
  Country: None (occurrence: None)
  Receive Date: 20110221
  Receipt Date: 20110216
  Transmission Date: 20110831
  Serious: Yes (Life-Threatening, Hospitalization)
  Sender: FDA-Public Use
  Company Number: FR-SANOFI-AVENTIS-2011SA009816

PATIENT
  Age: 83 Year
  Sex: Male

DRUGS (10)
  1. ALLOPURINOL [Concomitant]
     Route: 048
  2. BACTRIM [Concomitant]
     Route: 048
     Dates: start: 20101201, end: 20101201
  3. VALSARTAN/HYDROCHLOROTHIAZIDE [Concomitant]
     Route: 048
  4. DILTIAZEM [Concomitant]
     Route: 048
  5. LEVOTHYROX [Concomitant]
     Indication: HYPOTHYROIDISM
     Route: 048
  6. PREVISCAN [Concomitant]
     Indication: THROMBOSIS PROPHYLAXIS
     Route: 048
  7. ELOXATIN [Suspect]
     Indication: COLON CANCER
     Route: 042
     Dates: start: 20101207, end: 20101214
  8. ELISOR [Concomitant]
     Route: 048
  9. XELODA [Suspect]
     Indication: COLON CANCER
     Route: 042
     Dates: start: 20101207, end: 20101214
  10. DIFFU K [Concomitant]
     Route: 048

REACTIONS (2)
  - DRUG INTERACTION [None]
  - MYOCARDIAL INFARCTION [None]
